FAERS Safety Report 18370160 (Version 1)
Quarter: 2020Q4

REPORT INFORMATION
  Report Type: Spontaneous
  Country: FR (occurrence: FR)
  Receive Date: 20201012
  Receipt Date: 20201012
  Transmission Date: 20210114
  Serious: Yes (Other)
  Sender: FDA-Public Use
  Company Number: FR-ASTRAZENECA-2020SF30283

PATIENT
  Sex: Female
  Weight: 66 kg

DRUGS (1)
  1. OLAPARIB. [Suspect]
     Active Substance: OLAPARIB
     Indication: OVARIAN CANCER
     Dosage: 600.0MG UNKNOWN
     Route: 048
     Dates: start: 20200611, end: 20200707

REACTIONS (2)
  - Myelodysplastic syndrome [Not Recovered/Not Resolved]
  - Erythroblast count [Not Recovered/Not Resolved]

NARRATIVE: CASE EVENT DATE: 20200619
